FAERS Safety Report 14358362 (Version 3)
Quarter: 2018Q4

REPORT INFORMATION
  Report Type: Spontaneous
  Country: US (occurrence: US)
  Receive Date: 20180105
  Receipt Date: 20181129
  Transmission Date: 20190204
  Serious: No
  Sender: FDA-Public Use
  Company Number: US-SA-2017SA206065

PATIENT
  Age: 57 Year
  Sex: Male

DRUGS (6)
  1. DUPIXENT [Suspect]
     Active Substance: DUPILUMAB
     Indication: ECZEMA
     Dosage: 300 MG,QOW
     Route: 058
     Dates: start: 20170914
  2. SIMVASTATIN. [Concomitant]
     Active Substance: SIMVASTATIN
     Indication: BLOOD CHOLESTEROL INCREASED
     Dosage: 5 MG,UNK
     Route: 065
  3. ACIPHEX [Concomitant]
     Active Substance: RABEPRAZOLE SODIUM
     Dosage: 20 MG,UNK
     Route: 065
  4. ASACOL [Concomitant]
     Active Substance: MESALAMINE
     Dosage: 400 MG,UNK
     Route: 065
  5. DUPIXENT [Suspect]
     Active Substance: DUPILUMAB
     Indication: DERMATITIS ATOPIC
  6. LORATADINE. [Concomitant]
     Active Substance: LORATADINE
     Indication: GASTROINTESTINAL DISORDER
     Dosage: 10 MG,UNK
     Route: 065

REACTIONS (6)
  - Injection site pain [Unknown]
  - Ocular hyperaemia [Recovered/Resolved]
  - Eye discharge [Recovered/Resolved]
  - Eye irritation [Recovered/Resolved]
  - Conjunctivitis [Recovered/Resolved]
  - Eye pruritus [Recovered/Resolved]

NARRATIVE: CASE EVENT DATE: 20171007
